FAERS Safety Report 23591277 (Version 5)
Quarter: 2024Q4

REPORT INFORMATION
  Report Type: Spontaneous
  Country: JP (occurrence: JP)
  Receive Date: 20240304
  Receipt Date: 20241126
  Transmission Date: 20250115
  Serious: Yes (Disabling, Other)
  Sender: ROCHE
  Company Number: JP-CHUGAI-2024006337

PATIENT
  Age: 57 Year
  Sex: Female
  Weight: 62.0 kg

DRUGS (11)
  1. POLIVY [Suspect]
     Active Substance: POLATUZUMAB VEDOTIN-PIIQ
     Indication: Diffuse large B-cell lymphoma
     Route: 065
     Dates: start: 20231218, end: 20231218
  2. POLIVY [Suspect]
     Active Substance: POLATUZUMAB VEDOTIN-PIIQ
     Route: 065
     Dates: start: 20240111, end: 20240111
  3. RITUXIMAB [Suspect]
     Active Substance: RITUXIMAB
     Indication: Diffuse large B-cell lymphoma
     Dosage: 375 MILLIGRAM/SQ. METER, ONCE/3WEEKS
     Route: 042
     Dates: start: 20231219, end: 20231219
  4. CYCLOPHOSPHAMIDE [Suspect]
     Active Substance: CYCLOPHOSPHAMIDE
     Indication: Diffuse large B-cell lymphoma
     Dosage: 750 MILLIGRAM/SQ. METER, ONCE/3WEEKS
     Route: 065
     Dates: start: 20231218, end: 20231218
  5. DOXORUBICIN HYDROCHLORIDE [Suspect]
     Active Substance: DOXORUBICIN HYDROCHLORIDE
     Indication: Diffuse large B-cell lymphoma
     Dosage: 50 MILLIGRAM/SQ. METER, ONCE/3WEEKS
     Route: 065
     Dates: start: 20231218, end: 20231218
  6. PREDONINE [Suspect]
     Active Substance: PREDNISOLONE
     Indication: Diffuse large B-cell lymphoma
     Dosage: 80 MILLIGRAM, QD
     Route: 065
     Dates: start: 20231214, end: 20231218
  7. FEBUXOSTAT [Concomitant]
     Active Substance: FEBUXOSTAT
     Dosage: UNK
     Route: 065
     Dates: start: 20231214, end: 20231219
  8. MEROPENEM [Concomitant]
     Active Substance: MEROPENEM
     Dosage: UNK
     Route: 065
     Dates: start: 20231214, end: 20231221
  9. ACYCLOVIR [Concomitant]
     Active Substance: ACYCLOVIR
     Dosage: UNK
     Route: 065
     Dates: start: 20231215
  10. LANSOPRAZOLE [Concomitant]
     Active Substance: LANSOPRAZOLE
     Dosage: UNK
     Route: 065
     Dates: start: 20231215
  11. RASBURICASE [Concomitant]
     Active Substance: RASBURICASE
     Dosage: UNK
     Route: 065
     Dates: start: 20231217, end: 20231223

REACTIONS (5)
  - Peroneal nerve palsy [Recovering/Resolving]
  - Peripheral motor neuropathy [Recovering/Resolving]
  - Tumour lysis syndrome [Recovered/Resolved]
  - Dysarthria [Recovered/Resolved]
  - Muscular weakness [Unknown]

NARRATIVE: CASE EVENT DATE: 20231220
